FAERS Safety Report 6167950-X (Version None)
Quarter: 2009Q2

REPORT INFORMATION
  Report Type: 
  Country: None (occurrence: None)
  Receive Date: 20090427
  Receipt Date: 20090416
  Transmission Date: 20091009
  Serious: Yes (Other)
  Sender: FDA-Public Use
  Company Number: BR-BAYER-200915450LA

PATIENT
  Age: 36 Year
  Sex: Female
  Weight: 85 kg

DRUGS (1)
  1. MIRENA [Suspect]
     Indication: CONTRACEPTION
     Dosage: FREQUENCY: CONTINUOUSLY
     Route: 015
     Dates: start: 20081210, end: 20090207

REACTIONS (8)
  - INSOMNIA [None]
  - IUCD COMPLICATION [None]
  - MOBILITY DECREASED [None]
  - PELVIC PAIN [None]
  - PROCEDURAL PAIN [None]
  - VAGINAL HAEMORRHAGE [None]
  - VAGINAL ULCERATION [None]
  - VULVOVAGINAL PAIN [None]
